FAERS Safety Report 6828259-1 (Version None)
Quarter: 2010Q3

REPORT INFORMATION
  Report Type: 
  Country: None (occurrence: None)
  Receive Date: 20100709
  Receipt Date: 20070201
  Transmission Date: 20110219
  Serious: No
  Sender: FDA-Public Use
  Company Number: US-PFIZER INC-2007009624

PATIENT
  Sex: Male
  Weight: 56.25 kg

DRUGS (13)
  1. CHANTIX [Suspect]
     Indication: SMOKING CESSATION THERAPY
     Dates: start: 20070201
  2. MAGNESIUM [Suspect]
     Indication: MYALGIA
  3. MAGNESIUM [Suspect]
     Indication: MUSCLE SPASMS
  4. MAGNESIUM [Suspect]
  5. TRAMADOL HCL [Concomitant]
     Indication: INTERVERTEBRAL DISC DEGENERATION
  6. TRAMADOL HCL [Concomitant]
     Indication: INTERVERTEBRAL DISC COMPRESSION
  7. TRAMADOL HCL [Concomitant]
     Indication: BACK PAIN
  8. CALCIUM CARBONATE [Concomitant]
     Indication: MYALGIA
  9. CALCIUM CARBONATE [Concomitant]
     Indication: MUSCLE SPASMS
  10. CALCIUM CARBONATE [Concomitant]
  11. VITAMINS [Concomitant]
     Indication: MYALGIA
  12. VITAMINS [Concomitant]
     Indication: MUSCLE SPASMS
  13. VITAMINS [Concomitant]

REACTIONS (2)
  - ABDOMINAL DISCOMFORT [None]
  - HEADACHE [None]
